FAERS Safety Report 5862770-5 (Version None)
Quarter: 2008Q3

REPORT INFORMATION
  Report Type: 
  Country: None (occurrence: None)
  Receive Date: 20080818
  Receipt Date: 20080418
  Transmission Date: 20090109
  Serious: No
  Sender: FDA-Public Use
  Company Number: WAES 0804USA04013

PATIENT
  Age: 71 Year
  Sex: Female

DRUGS (7)
  1. JANUVIA [Suspect]
     Indication: TYPE 2 DIABETES MELLITUS
     Dosage: 100 MG/DAILY/PO
     Route: 048
     Dates: start: 20080101, end: 20080501
  2. [THERAPY UNSPECIFIED] [Concomitant]
  3. GLYBURIDE [Concomitant]
  4. ISOSORBIDE MONONITRATE [Concomitant]
  5. LISINOPRIL [Concomitant]
  6. METFORMIN HCL [Concomitant]
  7. TORSEMIDE [Concomitant]

REACTIONS (4)
  - BALANCE DISORDER [None]
  - DYSPNOEA [None]
  - RASH ERYTHEMATOUS [None]
  - ULCER [None]
